FAERS Safety Report 10341553 (Version 5)
Quarter: 2014Q4

REPORT INFORMATION
  Report Type: Report from Study
  Country: JP (occurrence: JP)
  Receive Date: 20140725
  Receipt Date: 20141208
  Transmission Date: 20150528
  Serious: Yes (Death, Other)
  Sender: FDA-Public Use
  Company Number: JP-009507513-1407JPN010903

PATIENT
  Age: 77 Year
  Sex: Female
  Weight: 49 kg

DRUGS (6)
  1. PEGINTRON [Suspect]
     Active Substance: PEGINTERFERON ALFA-2B
     Indication: CHRONIC HEPATITIS C
     Dosage: 1.5 MICROGRAM PER KILOGRAM, QW
     Route: 058
     Dates: start: 20140221, end: 20140418
  2. PEGINTRON [Suspect]
     Active Substance: PEGINTERFERON ALFA-2B
     Dosage: 0.6 MICROGRAM PER KILOGRAM, QW
     Route: 058
     Dates: start: 20140425, end: 20140516
  3. SELBEX [Concomitant]
     Active Substance: TEPRENONE
     Indication: PROPHYLAXIS
     Dosage: 150 MG, QD
     Route: 048
     Dates: start: 20140211
  4. REBETOL [Suspect]
     Active Substance: RIBAVIRIN
     Indication: INTRACRANIAL ANEURYSM
     Dosage: 200 MG, BID
     Route: 048
     Dates: start: 20140221, end: 20140704
  5. LOCHOL (FLUVASTATIN SODIUM) [Concomitant]
     Active Substance: FLUVASTATIN SODIUM
     Indication: HYPERLIPIDAEMIA
     Dosage: 30 MG, QD
     Route: 048
     Dates: start: 20140221, end: 20140516
  6. SIMEPREVIR [Suspect]
     Active Substance: SIMEPREVIR
     Indication: CHRONIC HEPATITIS C
     Dosage: 100 MG, QD
     Route: 048
     Dates: start: 20140221, end: 20140515

REACTIONS (4)
  - Cerebral haemorrhage [Fatal]
  - White blood cell count decreased [Recovered/Resolved]
  - Cardio-respiratory arrest [Fatal]
  - Platelet count decreased [Unknown]

NARRATIVE: CASE EVENT DATE: 20140418
